FAERS Safety Report 5088676-X (Version None)
Quarter: 2006Q3

REPORT INFORMATION
  Report Type: 
  Country: None (occurrence: None)
  Receive Date: 20060825
  Receipt Date: 20060811
  Transmission Date: 20061208
  Serious: Yes (Hospitalization, Congenital Anomaly)
  Sender: FDA-Public Use
  Company Number: US-KINGPHARMUSA00001-K200601043

PATIENT
  Age: 1 Day
  Sex: Female
  Weight: 2 kg

DRUGS (9)
  1. ALTACE [Suspect]
     Indication: HYPERTENSION
     Dosage: 5 MG, QD
     Route: 064
     Dates: end: 20050906
  2. LASILIX [Suspect]
     Indication: HYPERTENSION
     Dosage: 20 MG, QD
     Route: 064
  3. UMULINE [Concomitant]
     Indication: DIABETES MELLITUS INSULIN-DEPENDENT
     Dosage: SOLUTION FOR INJECTION
     Route: 064
  4. LEVOTHYROXINE SODIUM [Concomitant]
     Indication: THYROIDITIS
     Dosage: UNK, UNK
     Route: 064
  5. HUMALOG [Concomitant]
     Indication: DIABETES MELLITUS INSULIN-DEPENDENT
     Dosage: UNK, UNK
     Route: 064
  6. AMLODIPINE BESYLATE [Concomitant]
     Indication: HYPERTENSION
     Dosage: UNK, UNK
     Route: 064
  7. LOXEN [Concomitant]
     Indication: HYPERTENSION
     Dosage: UNK, UNK
     Route: 064
  8. MEDIATENSYL [Concomitant]
     Indication: HYPERTENSION
     Dosage: UNK, UNK
     Route: 064
  9. CELESTENE [Concomitant]
     Dosage: 24 MG, QD
     Route: 064

REACTIONS (12)
  - ATRIAL SEPTAL DEFECT [None]
  - CAESAREAN SECTION [None]
  - DRUG EXPOSURE DURING PREGNANCY [None]
  - DYSMORPHISM [None]
  - HEART DISEASE CONGENITAL [None]
  - LORDOSIS [None]
  - MITRAL VALVE INCOMPETENCE [None]
  - NEONATAL RESPIRATORY DISTRESS SYNDROME [None]
  - PATENT DUCTUS ARTERIOSUS [None]
  - PREMATURE BABY [None]
  - SOLITARY KIDNEY [None]
  - VENTRICULAR SEPTAL DEFECT [None]
